FAERS Safety Report 18001895 (Version 1)
Quarter: 2020Q3

REPORT INFORMATION
  Report Type: Spontaneous
  Country: PL (occurrence: PL)
  Receive Date: 20200709
  Receipt Date: 20200709
  Transmission Date: 20201103
  Serious: Yes (Other)
  Sender: FDA-Public Use
  Company Number: PL-ACCORD-189062

PATIENT
  Age: 37 Year
  Sex: Male

DRUGS (1)
  1. MITOMYCIN. [Suspect]
     Active Substance: MITOMYCIN
     Indication: TRABECULECTOMY
     Dosage: 0.05% FOR 3 MINUTES

REACTIONS (2)
  - Hypotony maculopathy [Unknown]
  - Choroidal effusion [Unknown]
